FAERS Safety Report 9791775 (Version 2)
Quarter: 2014Q1

REPORT INFORMATION
  Report Type: Report from Study
  Country: AU (occurrence: AU)
  Receive Date: 20140102
  Receipt Date: 20140218
  Transmission Date: 20141002
  Serious: Yes (Other)
  Sender: FDA-Public Use
  Company Number: AU-ROCHE-1323544

PATIENT
  Age: 57 Year
  Sex: Female
  Weight: 69.9 kg

DRUGS (2)
  1. VEMURAFENIB [Suspect]
     Indication: METASTATIC MALIGNANT MELANOMA
     Dosage: LAST DOSE PRIOR TO THE EVENT : 17/DEC/2013
     Route: 048
     Dates: start: 20130531, end: 20131217
  2. BLINDED COBIMETINIB [Suspect]
     Indication: METASTATIC MALIGNANT MELANOMA
     Dosage: LAST DOSE PRIOR TO THE EVENT : 17/DEC/2013
     Route: 048
     Dates: start: 20130531

REACTIONS (1)
  - Mucinous breast carcinoma [Recovered/Resolved]
